FAERS Safety Report 13958690 (Version 1)
Quarter: 2017Q3

REPORT INFORMATION
  Report Type: Spontaneous
  Country: CN (occurrence: CN)
  Receive Date: 20170911
  Receipt Date: 20170911
  Transmission Date: 20171128
  Serious: Yes (Life-Threatening, Hospitalization, Other)
  Sender: FDA-Public Use
  Company Number: CN-BAXALTA-2017BLT003681

PATIENT

DRUGS (1)
  1. HUMAN SERUM ALBUMIN; NG [Suspect]
     Active Substance: ALBUMIN HUMAN
     Indication: BLOOD OSMOLARITY INCREASED
     Dosage: 10 G, 1X A DAY
     Route: 041
     Dates: start: 20161204, end: 20161204

REACTIONS (6)
  - Oxygen saturation decreased [None]
  - Hypersensitivity [Unknown]
  - Blood pressure systolic increased [None]
  - Coma [Unknown]
  - Pyrexia [Unknown]
  - Chills [Unknown]

NARRATIVE: CASE EVENT DATE: 20161204
